FAERS Safety Report 4940410-7 (Version None)
Quarter: 2006Q1

REPORT INFORMATION
  Report Type: 
  Country: None (occurrence: None)
  Receive Date: 20060127
  Receipt Date: 20050302
  Transmission Date: 20060701
  Serious: Yes (Life-Threatening, Hospitalization)
  Sender: FDA-Public Use
  Company Number: 200511674US

PATIENT
  Sex: Female

DRUGS (1)
  1. AMARYL [Suspect]
     Dosage: 2 MG

REACTIONS (1)
  - HYPOGLYCAEMIC COMA [None]
